FAERS Safety Report 10159906 (Version 1)
Quarter: 2014Q2

REPORT INFORMATION
  Report Type: Spontaneous
  Country: US (occurrence: US)
  Receive Date: 20140508
  Receipt Date: 20140508
  Transmission Date: 20141212
  Serious: No
  Sender: FDA-Public Use
  Company Number: US-GLAXOSMITHKLINE-A1040650A

PATIENT
  Age: 65 Year
  Sex: Female

DRUGS (9)
  1. TYKERB [Suspect]
     Indication: BREAST CANCER
     Dosage: 1250MG PER DAY
     Route: 048
     Dates: start: 20110624, end: 201309
  2. VITAMIN B COMPLEX [Concomitant]
  3. CALCIUM SUPPLEMENT [Concomitant]
  4. MAGNESIUM [Concomitant]
  5. CO ENZYME Q10 [Concomitant]
  6. OMEGA 3 [Concomitant]
  7. POTASSIUM [Concomitant]
  8. PRILOSEC [Concomitant]
  9. PROBIOTIC [Concomitant]

REACTIONS (2)
  - Drug ineffective [Unknown]
  - Condition aggravated [Not Recovered/Not Resolved]
